FAERS Safety Report 9806027 (Version 3)
Quarter: 2014Q1

REPORT INFORMATION
  Report Type: Report from Study
  Country: KR (occurrence: KR)
  Receive Date: 20140109
  Receipt Date: 20140317
  Transmission Date: 20141002
  Serious: Yes (Hospitalization)
  Sender: FDA-Public Use
  Company Number: KR-JNJFOC-20140100378

PATIENT
  Age: 9 Year
  Sex: Male
  Weight: 36.3 kg

DRUGS (42)
  1. REMICADE [Suspect]
     Indication: CROHN^S DISEASE
     Route: 042
     Dates: start: 20121120, end: 20121120
  2. REMICADE [Suspect]
     Indication: CROHN^S DISEASE
     Dosage: INFUSION NO 4
     Route: 042
     Dates: start: 20121120, end: 20130404
  3. REMICADE [Suspect]
     Indication: CROHN^S DISEASE
     Route: 042
     Dates: start: 20120814, end: 20120814
  4. REMICADE [Suspect]
     Indication: CROHN^S DISEASE
     Route: 042
     Dates: start: 20120905, end: 20120905
  5. REMICADE [Suspect]
     Indication: CROHN^S DISEASE
     Route: 042
     Dates: start: 20121004, end: 20121004
  6. AZATHIOPRINE [Concomitant]
     Indication: CROHN^S DISEASE
     Dosage: DOSE: 25 MG
     Route: 048
     Dates: start: 20110211, end: 20110306
  7. AZATHIOPRINE [Concomitant]
     Indication: CROHN^S DISEASE
     Dosage: DOSE: 50 MG
     Route: 048
     Dates: start: 20120409, end: 20120806
  8. AZATHIOPRINE [Concomitant]
     Indication: CROHN^S DISEASE
     Dosage: DOSE: 50 MG
     Route: 048
     Dates: start: 20110530, end: 20110608
  9. AZATHIOPRINE [Concomitant]
     Indication: CROHN^S DISEASE
     Dosage: DOSE: 37.5 MG
     Route: 048
     Dates: start: 20110307, end: 20110516
  10. AZATHIOPRINE [Concomitant]
     Indication: CROHN^S DISEASE
     Dosage: DOSE: 50 MG
     Route: 048
     Dates: start: 20120807, end: 20120816
  11. AZATHIOPRINE [Concomitant]
     Indication: CROHN^S DISEASE
     Dosage: DOSE: 50 MG
     Route: 048
     Dates: start: 20111219, end: 20120408
  12. AZATHIOPRINE [Concomitant]
     Indication: CROHN^S DISEASE
     Dosage: DOSE: 50 MG
     Route: 048
     Dates: start: 20110809, end: 20111218
  13. NISOLONE [Concomitant]
     Indication: CROHN^S DISEASE
     Dosage: DOSE: 25 MG
     Route: 048
     Dates: start: 20110214, end: 20110306
  14. NISOLONE [Concomitant]
     Indication: CROHN^S DISEASE
     Dosage: DOSE: 37.5 MG
     Route: 048
     Dates: start: 20110307, end: 20110710
  15. METHOTREXATE [Concomitant]
     Indication: CROHN^S DISEASE
     Dosage: DOSE: 15 MG
     Route: 058
     Dates: start: 20130321
  16. SOLONDO [Concomitant]
     Indication: CROHN^S DISEASE
     Dosage: DOSE 1 TABLET
     Route: 048
     Dates: start: 20130117, end: 20130120
  17. SOLONDO [Concomitant]
     Indication: CROHN^S DISEASE
     Dosage: DOSE 2 AND 1 TABLET
     Route: 048
     Dates: start: 20130108, end: 20130116
  18. SOLONDO [Concomitant]
     Indication: CROHN^S DISEASE
     Dosage: DOSE 2 TABLET
     Route: 048
     Dates: start: 20130121, end: 20130123
  19. SOLONDO [Concomitant]
     Indication: CROHN^S DISEASE
     Dosage: DOSE 2 AND 1 TABLET
     Route: 048
     Dates: start: 20130124, end: 20130131
  20. SOLONDO [Concomitant]
     Indication: CROHN^S DISEASE
     Dosage: DOSE 1 TABLET
     Route: 048
     Dates: start: 20130508, end: 20130517
  21. SOLONDO [Concomitant]
     Indication: CROHN^S DISEASE
     Dosage: DOSE 1 TABLET
     Route: 048
     Dates: start: 20130501, end: 20130507
  22. SOLONDO [Concomitant]
     Indication: CROHN^S DISEASE
     Dosage: DOSE 1.5 TABLET
     Route: 048
     Dates: start: 20130424, end: 20130430
  23. SOLONDO [Concomitant]
     Indication: CROHN^S DISEASE
     Dosage: DOSE 10 MG
     Route: 048
     Dates: start: 20130326, end: 20130423
  24. SOLONDO [Concomitant]
     Indication: CROHN^S DISEASE
     Dosage: DOSE 5 MG
     Route: 048
     Dates: start: 20130314, end: 20130325
  25. SOLONDO [Concomitant]
     Indication: CROHN^S DISEASE
     Dosage: DOSE 1 TABLET
     Route: 048
     Dates: start: 20130306, end: 20130312
  26. SOLONDO [Concomitant]
     Indication: CROHN^S DISEASE
     Dosage: DOSE 1 TABLET
     Route: 048
     Dates: start: 20130227, end: 20130305
  27. SOLONDO [Concomitant]
     Indication: CROHN^S DISEASE
     Dosage: DOSE 1 TABLET
     Route: 048
     Dates: start: 20130220, end: 20130226
  28. SOLONDO [Concomitant]
     Indication: CROHN^S DISEASE
     Dosage: DOSE 2 TABLET
     Route: 048
     Dates: start: 20130213, end: 20130219
  29. SOLONDO [Concomitant]
     Indication: CROHN^S DISEASE
     Dosage: DOSE 2.5 TABLET
     Route: 048
     Dates: start: 20130205, end: 20130212
  30. SOLONDO [Concomitant]
     Indication: CROHN^S DISEASE
     Dosage: DOSE 1 TABLET
     Route: 048
     Dates: start: 20130204, end: 20130204
  31. SOLONDO [Concomitant]
     Indication: CROHN^S DISEASE
     Dosage: DOSE 2 TABLET
     Route: 048
     Dates: start: 20130201, end: 20130203
  32. FLASINYL [Concomitant]
     Indication: ANTIBIOTIC THERAPY
     Dosage: 1 TABLET
     Route: 048
     Dates: start: 20120823, end: 20121101
  33. FLASINYL [Concomitant]
     Indication: ANTIBIOTIC THERAPY
     Dosage: 1 TABLET
     Route: 048
     Dates: start: 20120806, end: 20120820
  34. FLASINYL [Concomitant]
     Indication: ANTIBIOTIC THERAPY
     Route: 048
     Dates: start: 20130314, end: 20130404
  35. NORMIX [Concomitant]
     Indication: ANTIBIOTIC THERAPY
     Route: 048
     Dates: start: 20130314, end: 20130325
  36. NORMIX [Concomitant]
     Indication: ANTIBIOTIC THERAPY
     Route: 048
     Dates: start: 20120806, end: 20120820
  37. SEPTRIN [Concomitant]
     Indication: ANTIBIOTIC THERAPY
     Route: 048
     Dates: start: 20130325, end: 20130404
  38. TAZOPERAN [Concomitant]
     Dosage: DOSE 2.4 G
     Route: 042
     Dates: start: 20130314, end: 20130405
  39. TAZOPERAN [Concomitant]
     Dosage: DOSE 2.25 G
     Route: 042
     Dates: start: 20120806, end: 20120820
  40. BIOFLOR [Concomitant]
     Indication: GASTROINTESTINAL DISORDER
     Route: 048
     Dates: start: 20120806
  41. VANCOMYCIN HCL [Concomitant]
     Indication: ANTIBIOTIC THERAPY
     Dosage: 410 MG
     Route: 042
     Dates: start: 20120826, end: 20120905
  42. POSPENEM [Concomitant]
     Indication: ANTIBIOTIC THERAPY
     Dosage: 550 MG
     Route: 042
     Dates: start: 20120826, end: 20120905

REACTIONS (5)
  - Epididymitis [Recovered/Resolved]
  - Crohn^s disease [Recovered/Resolved]
  - Infectious colitis [Recovered/Resolved]
  - Influenza [Recovered/Resolved]
  - Oral candidiasis [Recovered/Resolved]
